FAERS Safety Report 14900252 (Version 1)
Quarter: 2018Q2

REPORT INFORMATION
  Report Type: Spontaneous
  Country: US (occurrence: US)
  Receive Date: 20180516
  Receipt Date: 20180516
  Transmission Date: 20180711
  Serious: No
  Sender: FDA-Public Use
  Company Number: US-BAYER-2018-086278

PATIENT
  Age: 58 Year
  Sex: Female
  Weight: 107 kg

DRUGS (2)
  1. CHOLESTEROL [Concomitant]
     Active Substance: CHOLESTEROL
  2. MIRALAX [Suspect]
     Active Substance: POLYETHYLENE GLYCOL 3350
     Indication: GASTROINTESTINAL DISORDER
     Dosage: UNK, QD
     Route: 048
     Dates: start: 201709

REACTIONS (2)
  - Incorrect drug administration duration [Unknown]
  - Product prescribing issue [Unknown]

NARRATIVE: CASE EVENT DATE: 201709
